FAERS Safety Report 23170504 (Version 3)
Quarter: 2024Q3

REPORT INFORMATION
  Report Type: Report from Study
  Country: US (occurrence: US)
  Receive Date: 20231110
  Receipt Date: 20240715
  Transmission Date: 20241016
  Serious: Yes (Other)
  Sender: TAKEDA
  Company Number: US-TAKEDA-2023TUS108494

PATIENT
  Age: 39 Year
  Sex: Male

DRUGS (18)
  1. PONATINIB [Suspect]
     Active Substance: PONATINIB
     Indication: Acute lymphocytic leukaemia recurrent
     Dosage: 15 MILLIGRAM, QD
     Route: 048
     Dates: start: 20231026, end: 20231106
  2. PONATINIB [Suspect]
     Active Substance: PONATINIB
     Dosage: 15 MILLIGRAM, QD
     Route: 048
     Dates: start: 20231130
  3. PONATINIB [Suspect]
     Active Substance: PONATINIB
     Dosage: 15 MILLIGRAM, QD
     Route: 048
     Dates: start: 20240614, end: 20240614
  4. SIROLIMUS [Concomitant]
     Active Substance: SIROLIMUS
     Dosage: UNK
     Route: 065
  5. MYCOPHENOLIC ACID [Concomitant]
     Active Substance: MYCOPHENOLIC ACID
     Dosage: UNK
     Route: 065
  6. ACYCLOVIR [Concomitant]
     Active Substance: ACYCLOVIR
     Dosage: UNK
     Route: 065
  7. LETERMOVIR [Concomitant]
     Active Substance: LETERMOVIR
     Dosage: UNK
     Route: 065
  8. POSACONAZOLE [Concomitant]
     Active Substance: POSACONAZOLE
     Dosage: UNK
     Route: 065
  9. LEVOFLOXACIN [Concomitant]
     Active Substance: LEVOFLOXACIN
     Dosage: UNK
     Route: 065
  10. URSODIOL [Concomitant]
     Active Substance: URSODIOL
     Dosage: UNK
     Route: 065
  11. AMLODIPINE [Concomitant]
     Active Substance: AMLODIPINE BESYLATE
     Dosage: UNK
     Route: 065
  12. POTASSIUM [Concomitant]
     Active Substance: POTASSIUM
     Dosage: UNK
     Route: 065
  13. VITAMIN D [Concomitant]
     Active Substance: VITAMIN D NOS
     Dosage: UNK
     Route: 065
  14. FAMOTIDINE [Concomitant]
     Active Substance: FAMOTIDINE
     Dosage: UNK
     Route: 065
  15. TYLENOL [Concomitant]
     Active Substance: ACETAMINOPHEN
     Dosage: UNK
     Route: 065
  16. ZOFRAN [Concomitant]
     Active Substance: ONDANSETRON HYDROCHLORIDE
     Dosage: UNK
     Route: 065
  17. IMODIUM [Concomitant]
     Active Substance: LOPERAMIDE HYDROCHLORIDE
     Dosage: UNK
     Route: 065
  18. GUAIFENESIN [Concomitant]
     Active Substance: GUAIFENESIN
     Dosage: UNK
     Route: 065

REACTIONS (9)
  - Headache [Recovered/Resolved]
  - Pyrexia [Unknown]
  - Red blood cell count decreased [Unknown]
  - White blood cell count decreased [Unknown]
  - Hepatic enzyme increased [Recovered/Resolved]
  - Feeling abnormal [Unknown]
  - Decreased appetite [Unknown]
  - Product prescribing error [Unknown]
  - Inappropriate schedule of product administration [Unknown]

NARRATIVE: CASE EVENT DATE: 20231029
